FAERS Safety Report 5868362-6 (Version None)
Quarter: 2008Q3

REPORT INFORMATION
  Report Type: 
  Country: None (occurrence: None)
  Receive Date: 20080902
  Receipt Date: 20080902
  Transmission Date: 20090109
  Serious: Yes (Other)
  Sender: FDA-Public Use
  Company Number: None

PATIENT
  Age: 19 Year
  Sex: Female
  Weight: 81.6475 kg

DRUGS (1)
  1. LEVOTHYROXINE SODIUM [Suspect]
     Indication: HYPOTHYROIDISM
     Dosage: 25MCG  ONE PO QD
     Route: 048

REACTIONS (2)
  - NAUSEA [None]
  - VOMITING [None]
